FAERS Safety Report 5884860-3 (Version None)
Quarter: 2008Q3

REPORT INFORMATION
  Report Type: 
  Country: None (occurrence: None)
  Receive Date: 20080916
  Receipt Date: 20080908
  Transmission Date: 20090109
  Serious: Yes (Death)
  Sender: FDA-Public Use
  Company Number: CZ-PURDUE-DEU_2008_0004614

PATIENT
  Age: 52 Year
  Sex: Male

DRUGS (4)
  1. OXYCONTIN [Suspect]
     Indication: BACK PAIN
     Dosage: 120 MG, DAILY
     Route: 048
     Dates: start: 20040101
  2. RIVOTRIL [Concomitant]
  3. NIMESULIDE [Concomitant]
  4. ALCOHOL [Suspect]

REACTIONS (1)
  - DEATH [None]
